FAERS Safety Report 9388951 (Version 3)
Quarter: 2014Q1

REPORT INFORMATION
  Report Type: Spontaneous
  Country: US (occurrence: US)
  Receive Date: 20130708
  Receipt Date: 20140207
  Transmission Date: 20141002
  Serious: Yes (Hospitalization)
  Sender: FDA-Public Use
  Company Number: US-B.I. PHARMACEUTICALS,INC./RIDGEFIELD-2013-BI-19610BP

PATIENT
  Sex: Female
  Weight: 63.5 kg

DRUGS (9)
  1. PRADAXA [Suspect]
     Indication: ATRIAL FIBRILLATION
     Dosage: 300 MG
     Dates: start: 201009, end: 2012
  2. GARLIC [Concomitant]
  3. COQ-10 [Concomitant]
  4. COD LIVER OIL [Concomitant]
  5. B-12 [Concomitant]
  6. METOPROLOL [Concomitant]
     Dosage: 200 MG
  7. ARIMIDEX [Concomitant]
     Dosage: 1 MG
  8. HYDROCHLOROTHIAZIDE [Concomitant]
     Dosage: 25 MG
  9. HUMULIN N [Concomitant]

REACTIONS (3)
  - Gastrointestinal haemorrhage [Unknown]
  - Rectal haemorrhage [Unknown]
  - Haemorrhagic anaemia [Unknown]
